APPROVED DRUG PRODUCT: MIVACRON
Active Ingredient: MIVACURIUM CHLORIDE
Strength: EQ 20MG BASE/10ML (EQ 2MG BASE/ML)
Dosage Form/Route: SOLUTION;INTRAVENOUS
Application: N020098 | Product #005
Applicant: ABBVIE INC
Approved: Jan 22, 1992 | RLD: Yes | RS: No | Type: DISCN